FAERS Safety Report 23405704 (Version 1)
Quarter: 2024Q1

REPORT INFORMATION
  Report Type: Spontaneous
  Country: US (occurrence: None)
  Receive Date: 20240113
  Receipt Date: 20240113
  Transmission Date: 20240409
  Serious: No
  Sender: FDA-Public Use
  Company Number: None

PATIENT
  Age: 23 Year
  Sex: Male
  Weight: 56.25 kg

DRUGS (2)
  1. AUVELITY [Suspect]
     Active Substance: BUPROPION HYDROCHLORIDE\DEXTROMETHORPHAN HYDROBROMIDE
     Indication: Depression
     Dosage: OTHER QUANTITY : 30 TABLET(S);?FREQUENCY : DAILY;?
     Route: 048
     Dates: start: 20240108
  2. XELSTRYM [Concomitant]
     Active Substance: DEXTROAMPHETAMINE

REACTIONS (5)
  - Nausea [None]
  - Dizziness [None]
  - Dissociation [None]
  - Euphoric mood [None]
  - Cognitive disorder [None]

NARRATIVE: CASE EVENT DATE: 20240112
